FAERS Safety Report 5078655-0 (Version None)
Quarter: 2006Q3

REPORT INFORMATION
  Report Type: 
  Country: None (occurrence: None)
  Receive Date: 20060810
  Receipt Date: 20060810
  Transmission Date: 20061208
  Serious: Yes (Other)
  Sender: FDA-Public Use
  Company Number: None

PATIENT
  Age: 68 Year
  Sex: Female
  Weight: 54.4316 kg

DRUGS (8)
  1. EPINEPHRINE [Suspect]
     Indication: CATARACT OPERATION
     Dosage: 1 ML IN BSS 500 ML ONCE OPHTHALMIC [ONCE]
     Route: 047
     Dates: start: 20060601, end: 20060601
  2. CIPROFLOXACIN [Concomitant]
  3. TIMOLOL MALEATE [Concomitant]
  4. TETRACAINE POLYGYL STERILE OPHTHALMIC SOLUTION [Concomitant]
  5. FLURBIPROFEN [Concomitant]
  6. PHENYLEPHRINE [Concomitant]
  7. MYDRIACIL [Concomitant]
  8. CYCLOGEL [Concomitant]

REACTIONS (2)
  - ENDOPHTHALMITIS [None]
  - POST PROCEDURAL COMPLICATION [None]
